FAERS Safety Report 6109082-2 (Version None)
Quarter: 2009Q1

REPORT INFORMATION
  Report Type: 
  Country: None (occurrence: None)
  Receive Date: 20090310
  Receipt Date: 20090303
  Transmission Date: 20090719
  Serious: Yes (Death, Hospitalization, Other)
  Sender: FDA-Public Use
  Company Number: US-BAYER-200910674NA

PATIENT
  Age: 77 Year
  Sex: Male

DRUGS (1)
  1. AVELOX [Suspect]
     Indication: DRUG USE FOR UNKNOWN INDICATION

REACTIONS (4)
  - CLOSTRIDIAL INFECTION [None]
  - COLITIS [None]
  - COLON CANCER [None]
  - DIARRHOEA [None]
